FAERS Safety Report 6905174-6 (Version None)
Quarter: 2010Q3

REPORT INFORMATION
  Report Type: 
  Country: None (occurrence: None)
  Receive Date: 20100804
  Receipt Date: 20091113
  Transmission Date: 20110219
  Serious: Yes (Other)
  Sender: FDA-Public Use
  Company Number: US-PFIZER INC-2009241371

PATIENT
  Sex: Female
  Weight: 81.633 kg

DRUGS (3)
  1. LYRICA [Suspect]
     Indication: FIBROMYALGIA
     Dosage: 150 MG, 3X/DAY
     Route: 048
     Dates: start: 20080101
  2. CARBIDOPA [Concomitant]
     Indication: PARKINSON'S DISEASE
  3. VENLAFAXINE [Concomitant]
     Indication: DEPRESSION

REACTIONS (6)
  - BLOOD CHOLESTEROL INCREASED [None]
  - BLOOD TEST ABNORMAL [None]
  - FALL [None]
  - HEPATIC STEATOSIS [None]
  - PAIN [None]
  - WEIGHT INCREASED [None]
